FAERS Safety Report 17940578 (Version 1)
Quarter: 2020Q2

REPORT INFORMATION
  Report Type: Report from Study
  Country: US (occurrence: US)
  Receive Date: 20200624
  Receipt Date: 20200624
  Transmission Date: 20200714
  Serious: Yes (Other)
  Sender: FDA-Public Use
  Company Number: US-SEATTLE GENETICS-2020SGN02747

PATIENT
  Sex: Female

DRUGS (1)
  1. BRENTUXIMAB VEDOTIN [Suspect]
     Active Substance: BRENTUXIMAB VEDOTIN
     Indication: PRODUCT USED FOR UNKNOWN INDICATION
     Route: 065

REACTIONS (11)
  - Muscular weakness [Unknown]
  - Anxiety [Unknown]
  - Nausea [Unknown]
  - Lung disorder [Unknown]
  - Infection [Unknown]
  - Constipation [Unknown]
  - Abscess [Unknown]
  - Oedema peripheral [Unknown]
  - Insomnia [Unknown]
  - Staphylococcal infection [Unknown]
  - Pain in extremity [Unknown]
